FAERS Safety Report 6253427-X (Version None)
Quarter: 2009Q3

REPORT INFORMATION
  Report Type: 
  Country: None (occurrence: None)
  Receive Date: 20090701
  Receipt Date: 20090629
  Transmission Date: 20100115
  Serious: No
  Sender: FDA-Public Use
  Company Number: US-B.I. PHARMACEUTICALS,INC./RIDGEFIELD-2009-BP-07284BP

PATIENT
  Age: 88 Year
  Sex: Male

DRUGS (9)
  1. FLOMAX [Suspect]
     Indication: POLLAKIURIA
     Dosage: 0.4 MG
     Route: 048
     Dates: start: 20090201
  2. AGGRENOX [Concomitant]
     Indication: CEREBROVASCULAR ACCIDENT PROPHYLAXIS
  3. MICRONASE [Concomitant]
  4. PROSCAR [Concomitant]
     Indication: PROSTATE CANCER
  5. GLYBURIDE [Concomitant]
     Indication: DIABETES MELLITUS
  6. NORVASC [Concomitant]
  7. GLUCOPHAGE [Concomitant]
  8. HYTRIN [Concomitant]
  9. CARODEX [Concomitant]

REACTIONS (2)
  - CONSTIPATION [None]
  - NOCTURIA [None]
